FAERS Safety Report 21257362 (Version 1)
Quarter: 2022Q3

REPORT INFORMATION
  Report Type: Spontaneous
  Country: SE (occurrence: None)
  Receive Date: 20220826
  Receipt Date: 20220826
  Transmission Date: 20221027
  Serious: Yes (Life-Threatening, Hospitalization)
  Sender: FDA-Public Use
  Company Number: 2022A227775

PATIENT
  Age: 54 Year
  Sex: Male
  Weight: 82 kg

DRUGS (1)
  1. DAPAGLIFLOZIN [Suspect]
     Active Substance: DAPAGLIFLOZIN
     Indication: Type 2 diabetes mellitus
     Dosage: 10 MG 1 TABLETT /DAG
     Route: 048
     Dates: start: 20220523, end: 20220524

REACTIONS (2)
  - Diabetic ketoacidosis [Recovered/Resolved]
  - Genital infection [Unknown]

NARRATIVE: CASE EVENT DATE: 20220101
